FAERS Safety Report 16347249 (Version 1)
Quarter: 2019Q3

REPORT INFORMATION
  Report Type: Spontaneous
  Country: US (occurrence: US)
  Receive Date: 20190522
  Receipt Date: 20190522
  Transmission Date: 20191004
  Serious: Yes (Other)
  Sender: FDA-Public Use
  Company Number: None

PATIENT
  Age: 62 Year
  Sex: Male
  Weight: 93.3 kg

DRUGS (1)
  1. YESCARTA [Suspect]
     Active Substance: AXICABTAGENE CILOLEUCEL
     Indication: B-CELL LYMPHOMA
     Dosage: ?          OTHER FREQUENCY:ONCE;?
     Route: 042
     Dates: start: 20190417, end: 20190417

REACTIONS (7)
  - Lymphoma [None]
  - Disease recurrence [None]
  - Pyrexia [None]
  - Eye pain [None]
  - Eye swelling [None]
  - Neurotoxicity [None]
  - Cardiorenal syndrome [None]

NARRATIVE: CASE EVENT DATE: 20190417
